FAERS Safety Report 8488709-4 (Version None)
Quarter: 2012Q3

REPORT INFORMATION
  Report Type: 
  Country: None (occurrence: None)
  Receive Date: 20120705
  Receipt Date: 20120703
  Transmission Date: 20120928
  Serious: Yes (Death)
  Sender: FDA-Public Use
  Company Number: US-ROCHE-1083439

PATIENT
  Sex: Female
  Weight: 59.02 kg

DRUGS (2)
  1. AVASTIN [Suspect]
     Indication: LUNG NEOPLASM MALIGNANT
     Route: 042
     Dates: start: 20120124, end: 20120419
  2. TARCEVA [Suspect]
     Indication: LUNG NEOPLASM MALIGNANT
     Route: 048
     Dates: start: 20120521, end: 20120607

REACTIONS (3)
  - CARDIO-RESPIRATORY ARREST [None]
  - LUNG NEOPLASM MALIGNANT [None]
  - CEREBROVASCULAR ACCIDENT [None]
